FAERS Safety Report 9534195 (Version 1)
Quarter: 2013Q3

REPORT INFORMATION
  Report Type: Spontaneous
  Country: US (occurrence: US)
  Receive Date: 20130918
  Receipt Date: 20130918
  Transmission Date: 20140515
  Serious: No
  Sender: FDA-Public Use
  Company Number: US-009507513-1309USA007722

PATIENT
  Age: 6 Year
  Sex: Male

DRUGS (4)
  1. ASMANEX TWISTHALER [Suspect]
     Indication: ASTHMA
     Dosage: 2 DF, 2 PUFFS INTO LUNGS DAILY
     Route: 055
     Dates: start: 20120911
  2. CETIRIZINE HYDROCHLORIDE [Concomitant]
     Dosage: UNK
  3. EPIPEN [Concomitant]
     Dosage: UNK
  4. ALBUTEROL [Concomitant]
     Dosage: UNK, NEBULIZER

REACTIONS (5)
  - Cough [Not Recovered/Not Resolved]
  - Drug dose omission [Unknown]
  - Underdose [Unknown]
  - Product container issue [Unknown]
  - Product quality issue [Unknown]
